FAERS Safety Report 7778747-9 (Version None)
Quarter: 2011Q3

REPORT INFORMATION
  Report Type: 
  Country: None (occurrence: None)
  Receive Date: 20110926
  Receipt Date: 20110915
  Transmission Date: 20111222
  Serious: Yes (Hospitalization)
  Sender: FDA-Public Use
  Company Number: US-BAYER-2011-086855

PATIENT
  Age: 45 Year
  Sex: Female

DRUGS (1)
  1. YAZ [Suspect]
     Indication: PELVIC PAIN
     Dosage: UNK
     Dates: start: 20110501, end: 20110905

REACTIONS (1)
  - PULMONARY EMBOLISM [None]
